FAERS Safety Report 15021016 (Version 1)
Quarter: 2018Q2

REPORT INFORMATION
  Report Type: Spontaneous
  Country: US (occurrence: US)
  Receive Date: 20180524
  Receipt Date: 20180524
  Transmission Date: 20180711
  Serious: Yes (Hospitalization)
  Sender: FDA-Public Use
  Company Number: None

PATIENT
  Age: 46 Year
  Sex: Female

DRUGS (16)
  1. ATORVASTATIN [Concomitant]
     Active Substance: ATORVASTATIN
  2. HYDROCO/APAP [Concomitant]
     Active Substance: ACETAMINOPHEN\HYDROCODONE
  3. PROVIGIL [Concomitant]
     Active Substance: MODAFINIL
  4. CARVEDILOL. [Concomitant]
     Active Substance: CARVEDILOL
  5. ALPRAZOLAM. [Concomitant]
     Active Substance: ALPRAZOLAM
  6. BUPROPION. [Concomitant]
     Active Substance: BUPROPION
  7. DIAZEPAM. [Concomitant]
     Active Substance: DIAZEPAM
  8. LEXAPRO [Concomitant]
     Active Substance: ESCITALOPRAM OXALATE
  9. AMBIEN [Concomitant]
     Active Substance: ZOLPIDEM TARTRATE
  10. OMEPRAZOLE. [Concomitant]
     Active Substance: OMEPRAZOLE
  11. NUVIGIL [Concomitant]
     Active Substance: ARMODAFINIL
  12. ZOLPIDEM [Concomitant]
     Active Substance: ZOLPIDEM\ZOLPIDEM TARTRATE
  13. POTASSIUM CHLORIDE CAP [Concomitant]
  14. TIZANDINE [Concomitant]
     Active Substance: TIZANIDINE
  15. REBIF [Suspect]
     Active Substance: INTERFERON BETA-1A
     Indication: MULTIPLE SCLEROSIS
     Route: 058
     Dates: start: 201709
  16. CHLORTHALID [Concomitant]

REACTIONS (2)
  - Cardiac disorder [None]
  - Panic attack [None]

NARRATIVE: CASE EVENT DATE: 201805
